FAERS Safety Report 7493018-6 (Version None)
Quarter: 2011Q2

REPORT INFORMATION
  Report Type: 
  Country: None (occurrence: None)
  Receive Date: 20110520
  Receipt Date: 20110513
  Transmission Date: 20111010
  Serious: Yes (Hospitalization, Other)
  Sender: FDA-Public Use
  Company Number: US-JNJFOC-20110107711

PATIENT
  Sex: Female
  Weight: 71.12 kg

DRUGS (2)
  1. LEVAQUIN [Suspect]
     Indication: LUNG INFECTION
     Route: 048
     Dates: start: 20081116, end: 20100126
  2. LEVAQUIN [Suspect]
     Route: 048

REACTIONS (2)
  - TENDON RUPTURE [None]
  - ROTATOR CUFF SYNDROME [None]
